FAERS Safety Report 20696855 (Version 1)
Quarter: 2022Q2

REPORT INFORMATION
  Report Type: Spontaneous
  Country: US (occurrence: US)
  Receive Date: 20220411
  Receipt Date: 20220411
  Transmission Date: 20220720
  Serious: No
  Sender: FDA-Public Use
  Company Number: US-Adamas_Pharmaceuticals-USA-POI1235202100050

PATIENT
  Age: 55 Year
  Sex: Female

DRUGS (2)
  1. OSMOLEX ER [Suspect]
     Active Substance: AMANTADINE
     Indication: Parkinson^s disease
     Dates: start: 2020, end: 2021
  2. RYTARY [Concomitant]
     Active Substance: CARBIDOPA\LEVODOPA
     Indication: Product used for unknown indication

REACTIONS (2)
  - Skin discolouration [Unknown]
  - Pigmentation disorder [Unknown]

NARRATIVE: CASE EVENT DATE: 20210101
